FAERS Safety Report 8879039 (Version 1)
Quarter: 2012Q4

REPORT INFORMATION
  Report Type: Spontaneous
  Country: US (occurrence: None)
  Receive Date: 20121026
  Receipt Date: 20121026
  Transmission Date: 20130627
  Serious: No
  Sender: FDA-Public Use
  Company Number: None

PATIENT
  Sex: Male
  Weight: 69.85 kg

DRUGS (1)
  1. SEROQUEL [Suspect]
     Indication: MOOD DISORDER
     Route: 048

REACTIONS (2)
  - Product substitution issue [None]
  - Affective disorder [None]
